FAERS Safety Report 8138204-7 (Version None)
Quarter: 2012Q1

REPORT INFORMATION
  Report Type: 
  Country: None (occurrence: None)
  Receive Date: 20120215
  Receipt Date: 20120210
  Transmission Date: 20120608
  Serious: Yes (Death, Hospitalization, Other)
  Sender: FDA-Public Use
  Company Number: US-ASTELLAS-2011US004980

PATIENT
  Sex: Male
  Weight: 61 kg

DRUGS (6)
  1. TARCEVA [Suspect]
     Dosage: 150 MG, UID/QD
     Route: 048
     Dates: start: 20110719, end: 20110922
  2. TARCEVA [Suspect]
     Indication: NON-SMALL CELL LUNG CANCER
     Dosage: 150 MG, UID/QD
     Route: 048
     Dates: start: 20110401, end: 20110520
  3. ASPIRIN [Concomitant]
     Indication: PRODUCT USED FOR UNKNOWN INDICATION
     Dosage: 81 MG, UID/QD
     Route: 065
  4. MORPHINE SULFATE [Concomitant]
     Indication: PAIN
     Dosage: 30 MG, BID
     Route: 065
  5. TRAMADOL HCL [Concomitant]
     Indication: PAIN
     Dosage: 50 MG, TID
     Route: 065
  6. TOPROL-XL [Concomitant]
     Indication: PRODUCT USED FOR UNKNOWN INDICATION
     Dosage: 25 MG, UNKNOWN/D
     Route: 065

REACTIONS (5)
  - MUSCULOSKELETAL PAIN [None]
  - ATRIAL THROMBOSIS [None]
  - PANCREATITIS [None]
  - CEREBROVASCULAR ACCIDENT [None]
  - NEOPLASM MALIGNANT [None]
